FAERS Safety Report 23706484 (Version 2)
Quarter: 2024Q2

REPORT INFORMATION
  Report Type: Spontaneous
  Country: US (occurrence: US)
  Receive Date: 20240404
  Receipt Date: 20240508
  Transmission Date: 20240716
  Serious: Yes (Hospitalization, Other)
  Sender: FDA-Public Use
  Company Number: US-PFIZER INC-202400077719

PATIENT
  Age: 26 Year
  Sex: Female

DRUGS (2)
  1. SIROLIMUS [Suspect]
     Active Substance: SIROLIMUS
     Indication: Alveolar soft part sarcoma
     Dosage: UNK, TOLERATED THIS FOR ONLY 2 MONTHS
  2. CYCLOPHOSPHAMIDE [Suspect]
     Active Substance: CYCLOPHOSPHAMIDE
     Indication: Alveolar soft part sarcoma
     Dosage: UNK, TOLERATED THIS FOR ONLY 2 MONTHS

REACTIONS (4)
  - Dyspnoea [Recovered/Resolved]
  - Fatigue [Unknown]
  - Anxiety [Unknown]
  - Off label use [Unknown]
